FAERS Safety Report 17054028 (Version 2)
Quarter: 2019Q4

REPORT INFORMATION
  Report Type: Spontaneous
  Country: TR (occurrence: TR)
  Receive Date: 20191120
  Receipt Date: 20191126
  Transmission Date: 20200122
  Serious: Yes (Other)
  Sender: FDA-Public Use
  Company Number: TR-PFIZER INC-2019497018

PATIENT
  Age: 53 Year
  Sex: Male

DRUGS (5)
  1. DELTACORTRIL [PREDNISOLONE] [Concomitant]
     Dosage: 10 MG, UNK
     Dates: start: 2016
  2. DELTACORTRIL [PREDNISOLONE] [Concomitant]
     Dosage: 5 MG, UNK
  3. FOLIC ACID. [Concomitant]
     Active Substance: FOLIC ACID
  4. XELJANZ [Suspect]
     Active Substance: TOFACITINIB CITRATE
     Indication: RHEUMATOID ARTHRITIS
     Dosage: 5 MG, 2X/DAY
     Route: 048
     Dates: start: 201803, end: 2019
  5. METHOTREXATE. [Concomitant]
     Active Substance: METHOTREXATE
     Dosage: 15 MG, WEEKLY
     Dates: start: 2009

REACTIONS (1)
  - Peripheral artery stenosis [Recovered/Resolved]
